FAERS Safety Report 10902183 (Version 1)
Quarter: 2015Q1

REPORT INFORMATION
  Report Type: Spontaneous
  Country: FR (occurrence: FR)
  Receive Date: 20150310
  Receipt Date: 20150310
  Transmission Date: 20150721
  Serious: Yes (Hospitalization, Other)
  Sender: FDA-Public Use
  Company Number: FR-PFIZER INC-2015079963

PATIENT
  Age: 50 Year
  Sex: Male

DRUGS (8)
  1. OXYNORM [Concomitant]
     Active Substance: OXYCODONE HYDROCHLORIDE
     Dosage: 5 MG
     Dates: start: 201411
  2. OXYNORM [Concomitant]
     Active Substance: OXYCODONE HYDROCHLORIDE
     Dosage: 15 MG, UNK
     Dates: start: 20140929, end: 20140929
  3. AUGMENTIN [Concomitant]
     Active Substance: AMOXICILLIN\CLAVULANATE POTASSIUM
     Dosage: UNK
     Dates: start: 201411
  4. TAVANIC [Concomitant]
     Active Substance: LEVOFLOXACIN
     Dosage: UNK
     Dates: start: 201411
  5. OXYCONTIN [Concomitant]
     Active Substance: OXYCODONE HYDROCHLORIDE
     Dosage: 30 MG, 2X/DAY (EVERY 12 HOURS)
     Dates: start: 20140929, end: 20140929
  6. AVASTIN [Suspect]
     Active Substance: BEVACIZUMAB
     Indication: CLEAR CELL RENAL CELL CARCINOMA
     Dosage: 25 MG/ML, CYCLIC
     Dates: start: 20140929, end: 201412
  7. SUTENT [Suspect]
     Active Substance: SUNITINIB MALATE
     Indication: CLEAR CELL RENAL CELL CARCINOMA
     Dosage: 37.5 MG DAILY, 2 WEEKS ON 1 WEEK OFF
     Dates: start: 20140929, end: 201412
  8. OXYCONTIN [Concomitant]
     Active Substance: OXYCODONE HYDROCHLORIDE
     Dosage: 20 MG, 2X/DAY  (EVERY 12 HOURS)
     Dates: start: 201411, end: 201411

REACTIONS (2)
  - Glomerulonephropathy [Recovered/Resolved with Sequelae]
  - Spinal cord infection [Unknown]

NARRATIVE: CASE EVENT DATE: 201411
